FAERS Safety Report 4294717-X (Version None)
Quarter: 2004Q1

REPORT INFORMATION
  Report Type: 
  Country: None (occurrence: None)
  Receive Date: 20040213
  Receipt Date: 20040123
  Transmission Date: 20041129
  Serious: Yes (Death, Hospitalization)
  Sender: FDA-Public Use
  Company Number: PA-ROCHE-356991

PATIENT
  Age: 69 Year
  Sex: Female
  Weight: 61.6 kg

DRUGS (3)
  1. CAPECITABINE [Suspect]
     Dosage: ACTUAL DOSE 3300MG BID, ADMINISTERED AS AN INTERMITTENT THERAPY OF 2 WEEKS TREATMENT FOLLOWED BY 1 +
     Route: 048
     Dates: start: 20040109, end: 20040122
  2. OXALIPLATIN [Suspect]
     Dosage: ACTUAL DOSE 210MG, ADMINISTERED ON DAY 1 OF EACH 3 WEEK CYCLE
     Route: 042
     Dates: start: 20040109, end: 20040122
  3. UNSPECIFIED MEDICATION [Concomitant]
     Dates: start: 20040108, end: 20040122

REACTIONS (8)
  - ABDOMINAL STRANGULATED HERNIA [None]
  - BLOOD CHLORIDE INCREASED [None]
  - BLOOD POTASSIUM DECREASED [None]
  - DEHYDRATION [None]
  - DYSPNOEA [None]
  - GASTROINTESTINAL NECROSIS [None]
  - HAEMOGLOBIN DECREASED [None]
  - WHITE BLOOD CELL COUNT DECREASED [None]
